FAERS Safety Report 6214981-7 (Version None)
Quarter: 2009Q2

REPORT INFORMATION
  Report Type: 
  Country: None (occurrence: None)
  Receive Date: 20090604
  Receipt Date: 20080411
  Transmission Date: 20091009
  Serious: No
  Sender: FDA-Public Use
  Company Number: US-ASTRAZENECA-2008UW07544

PATIENT
  Age: 61 Year
  Sex: Female
  Weight: 52.2 kg

DRUGS (5)
  1. PRILOSEC [Suspect]
     Indication: GASTROOESOPHAGEAL REFLUX DISEASE
     Route: 048
  2. SYNTHROID [Concomitant]
  3. ESTRACE [Concomitant]
     Route: 061
  4. FLOVENT [Concomitant]
  5. FLONASE [Concomitant]

REACTIONS (4)
  - ABNORMAL FAECES [None]
  - DYSPHAGIA [None]
  - HEADACHE [None]
  - URINE ODOUR ABNORMAL [None]
